FAERS Safety Report 7589615-X (Version None)
Quarter: 2011Q3

REPORT INFORMATION
  Report Type: 
  Country: None (occurrence: None)
  Receive Date: 20110705
  Receipt Date: 20110620
  Transmission Date: 20111222
  Serious: Yes (Hospitalization)
  Sender: FDA-Public Use
  Company Number: TR-WATSON-2011-09594

PATIENT
  Age: 7 Year
  Sex: Female

DRUGS (1)
  1. CEFACLOR [Suspect]
     Indication: BRONCHITIS
     Route: 048

REACTIONS (3)
  - LINEAR IGA DISEASE [None]
  - SYSTEMIC LUPUS ERYTHEMATOSUS [None]
  - AUTOIMMUNE THYROIDITIS [None]
